FAERS Safety Report 12667957 (Version 1)
Quarter: 2016Q3

REPORT INFORMATION
  Report Type: Spontaneous
  Country: JP (occurrence: JP)
  Receive Date: 20160819
  Receipt Date: 20160819
  Transmission Date: 20161109
  Serious: Yes (Hospitalization)
  Sender: FDA-Public Use
  Company Number: JP-BAYER-2016-155911

PATIENT
  Age: 60 Year
  Sex: Male

DRUGS (2)
  1. INTERFERON BETA NOS [Concomitant]
     Active Substance: INTERFERON BETA
  2. DACARBAZINE. [Suspect]
     Active Substance: DACARBAZINE
     Indication: GENITOURINARY MELANOMA
     Dosage: 1000 MG/M2, UNK
     Dates: start: 201411

REACTIONS (5)
  - Lymphocytic infiltration [None]
  - Metastases to bone [None]
  - Metastases to spleen [None]
  - Metastases to lung [None]
  - Metastases to skin [None]
